FAERS Safety Report 18273597 (Version 1)
Quarter: 2020Q3

REPORT INFORMATION
  Report Type: Spontaneous
  Country: BR (occurrence: BR)
  Receive Date: 20200916
  Receipt Date: 20200916
  Transmission Date: 20201103
  Serious: Yes (Other)
  Sender: FDA-Public Use
  Company Number: BR-CHEPLA-C20202697

PATIENT
  Age: 13 Year
  Sex: Male

DRUGS (10)
  1. PREDNISONE. [Suspect]
     Active Substance: PREDNISONE
     Indication: IMMUNOSUPPRESSANT DRUG THERAPY
     Dosage: 30 MG, EVERY 1 DAY?MO 1 POST?OPERATIVE
     Route: 065
     Dates: start: 200602
  2. PREDNISONE. [Suspect]
     Active Substance: PREDNISONE
     Indication: IMMUNOSUPPRESSANT DRUG THERAPY
     Dosage: 5 MG, EVERY 1 DAY?MO 3, 6, 9, 12 POST?OPERATIVE
     Route: 065
     Dates: start: 200604, end: 2007
  3. TACROLIMUS. [Suspect]
     Active Substance: TACROLIMUS
     Indication: PANCREAS TRANSPLANT
     Dosage: 19 MG, EVERY 1 DAY?MO 12 POST?OPERATIVE
     Route: 065
     Dates: start: 200701
  4. TACROLIMUS. [Suspect]
     Active Substance: TACROLIMUS
     Indication: PANCREAS TRANSPLANT
     Dosage: 16 MG, EVERY 1 DAY?MO 1 POST?OPERATIVE
     Route: 065
     Dates: start: 200602
  5. GANCICLOVIR. [Suspect]
     Active Substance: GANCICLOVIR
     Indication: PROPHYLAXIS
     Dosage: 10 DAY DURING INDUCTION
     Route: 065
     Dates: start: 200601
  6. TACROLIMUS. [Suspect]
     Active Substance: TACROLIMUS
     Indication: PANCREAS TRANSPLANT
     Dosage: 20 MG, EVERY 1 DAY?MO 6 AND 9  POST?OPERATIVE
     Route: 065
     Dates: start: 200607
  7. GANCICLOVIR. [Suspect]
     Active Substance: GANCICLOVIR
     Indication: CYTOMEGALOVIRUS INFECTION
     Route: 042
  8. MYCOPHENOLATE MOFETIL. [Suspect]
     Active Substance: MYCOPHENOLATE MOFETIL
     Indication: PANCREAS TRANSPLANT
     Dosage: 1.5 G, EVERY 1 DAY
     Route: 065
     Dates: start: 200602, end: 2007
  9. TACROLIMUS. [Suspect]
     Active Substance: TACROLIMUS
     Indication: PANCREAS TRANSPLANT
     Dosage: 18 MG, EVERY 1 DAY?MO 3 POST?OPERATIVE
     Route: 065
     Dates: start: 200604
  10. THYMOGLOBULIN [Concomitant]
     Active Substance: LAPINE T-LYMPHOCYTE IMMUNE GLOBULIN

REACTIONS (5)
  - Urinary tract infection [Recovered/Resolved]
  - Amylase increased [Recovered/Resolved]
  - Lipase increased [Recovered/Resolved]
  - Amylase decreased [Recovered/Resolved]
  - Transplant rejection [Recovered/Resolved]

NARRATIVE: CASE EVENT DATE: 200602
